FAERS Safety Report 8201667-2 (Version None)
Quarter: 2012Q1

REPORT INFORMATION
  Report Type: 
  Country: None (occurrence: None)
  Receive Date: 20120312
  Receipt Date: 20120228
  Transmission Date: 20120608
  Serious: No
  Sender: FDA-Public Use
  Company Number: US-B.I. PHARMACEUTICALS,INC./RIDGEFIELD-2011-BP-01702BP

PATIENT
  Sex: Female
  Weight: 70.31 kg

DRUGS (3)
  1. MIRAPEX [Suspect]
     Indication: FIBROMYALGIA
     Dates: start: 20040805
  2. MIRAPEX [Suspect]
     Indication: PERIODIC LIMB MOVEMENT DISORDER
  3. MIRAPEX [Suspect]
     Indication: RESTLESS LEGS SYNDROME

REACTIONS (5)
  - PATHOLOGICAL GAMBLING [None]
  - EMOTIONAL DISTRESS [None]
  - SUICIDAL IDEATION [None]
  - PAIN [None]
  - OBSESSIVE-COMPULSIVE DISORDER [None]
